FAERS Safety Report 4431351-2 (Version None)
Quarter: 2004Q3

REPORT INFORMATION
  Report Type: 
  Country: None (occurrence: None)
  Receive Date: 20040818
  Receipt Date: 20040810
  Transmission Date: 20050211
  Serious: Yes (Death)
  Sender: FDA-Public Use
  Company Number: KII-1999-0003072

PATIENT
  Age: 39 Year
  Sex: Male

DRUGS (2)
  1. OXYCONTIN [Suspect]
     Indication: PAIN
     Dosage: 80 MG
  2. XANAX [Suspect]

REACTIONS (5)
  - CAFFEINE CONSUMPTION [None]
  - CORONARY ARTERY ATHEROSCLEROSIS [None]
  - DROWNING [None]
  - TOXICOLOGIC TEST ABNORMAL [None]
  - VICTIM OF HOMICIDE [None]
